FAERS Safety Report 7100182-7 (Version None)
Quarter: 2010Q4

REPORT INFORMATION
  Report Type: 
  Country: None (occurrence: None)
  Receive Date: 20101112
  Receipt Date: 20101027
  Transmission Date: 20110411
  Serious: No
  Sender: FDA-Public Use
  Company Number: A0876748A

PATIENT
  Age: 69 Year
  Sex: Male

DRUGS (19)
  1. CARVEDILOL [Suspect]
     Dosage: 50MG TWICE PER DAY
     Route: 048
     Dates: start: 20040101, end: 20060101
  2. DIGITEK [Concomitant]
  3. WATER PILL [Concomitant]
  4. INSULIN [Concomitant]
  5. ALLOPURINOL [Concomitant]
  6. HIGH BLOOD PRESSURE PILL [Concomitant]
  7. ALTACE [Concomitant]
  8. ZOCOR [Concomitant]
  9. FISH OIL [Concomitant]
  10. FOLIC ACID [Concomitant]
  11. VITAMIN E [Concomitant]
  12. ASPIRIN [Concomitant]
  13. CINNAMON [Concomitant]
  14. FUROSEMIDE [Concomitant]
  15. HUMULIN R [Concomitant]
  16. LESCOL XL [Concomitant]
  17. METFORMIN [Concomitant]
  18. SPIRONOLACTONE [Concomitant]
  19. TRICOR [Concomitant]

REACTIONS (2)
  - EJECTION FRACTION DECREASED [None]
  - MULTIPLE GATED ACQUISITION SCAN ABNORMAL [None]
